FAERS Safety Report 12946115 (Version 2)
Quarter: 2016Q4

REPORT INFORMATION
  Report Type: Report from Study
  Country: US (occurrence: US)
  Receive Date: 20161115
  Receipt Date: 20161129
  Transmission Date: 20170207
  Serious: Yes (Other)
  Sender: FDA-Public Use
  Company Number: US-GILEAD-2016-0243038

PATIENT
  Age: 57 Year
  Sex: Female
  Weight: 71.2 kg

DRUGS (3)
  1. LEDIPASVIR/SOFOSBUVIR [Suspect]
     Active Substance: LEDIPASVIR\SOFOSBUVIR
     Indication: CHRONIC HEPATITIS C
     Dosage: 1 DF, QD
     Route: 048
     Dates: start: 20160810, end: 20161102
  2. LAMICTAL [Concomitant]
     Active Substance: LAMOTRIGINE
  3. AMBIEN [Concomitant]
     Active Substance: ZOLPIDEM TARTRATE

REACTIONS (14)
  - Tooth disorder [Unknown]
  - Fatigue [Unknown]
  - Anxiety [Unknown]
  - Headache [Unknown]
  - Platelet count increased [Unknown]
  - Pneumonia [Recovered/Resolved]
  - Confusional state [Unknown]
  - Tooth abscess [Not Recovered/Not Resolved]
  - Body mass index increased [Unknown]
  - White blood cell count increased [Unknown]
  - Haematocrit increased [Unknown]
  - Liver function test increased [Unknown]
  - Muscular weakness [Unknown]
  - Blood pressure increased [Unknown]

NARRATIVE: CASE EVENT DATE: 2016
